FAERS Safety Report 6681202-0 (Version None)
Quarter: 2010Q2

REPORT INFORMATION
  Report Type: 
  Country: None (occurrence: None)
  Receive Date: 20100414
  Receipt Date: 20090921
  Transmission Date: 20101027
  Serious: No
  Sender: FDA-Public Use
  Company Number: US-KINGPHARMUSA00001-K200901159

PATIENT
  Sex: Female
  Weight: 45.351 kg

DRUGS (5)
  1. SKELAXIN [Suspect]
     Indication: MUSCLE DISORDER
     Dosage: 800 MG, TID
     Route: 048
     Dates: start: 20090917, end: 20090917
  2. SKELAXIN [Suspect]
     Dosage: 400 MG, SINGLE
     Dates: start: 20090919, end: 20090919
  3. SIMVASTATIN [Concomitant]
     Indication: BLOOD CHOLESTEROL INCREASED
     Dosage: UNK
  4. CALCIUM [Concomitant]
     Dosage: UNK
  5. FOSAMAX [Concomitant]
     Dosage: UNK, QW

REACTIONS (5)
  - DYSPEPSIA [None]
  - DYSURIA [None]
  - FATIGUE [None]
  - FEELING ABNORMAL [None]
  - HEADACHE [None]
